FAERS Safety Report 10252726 (Version 3)
Quarter: 2015Q4

REPORT INFORMATION
  Report Type: Spontaneous
  Country: US (occurrence: US)
  Receive Date: 20140623
  Receipt Date: 20151201
  Transmission Date: 20160304
  Serious: Yes (Hospitalization, Other)
  Sender: FDA-Public Use
  Company Number: US-009507513-1406USA009039

PATIENT
  Sex: Female

DRUGS (3)
  1. NEXIUM [Concomitant]
     Active Substance: ESOMEPRAZOLE MAGNESIUM
     Indication: PRODUCT USED FOR UNKNOWN INDICATION
     Dosage: UNK
     Route: 048
  2. FOSAMAX [Suspect]
     Active Substance: ALENDRONATE SODIUM
     Indication: OSTEOPENIA
     Dosage: UNK, UNK
     Route: 048
     Dates: start: 1996, end: 2006
  3. FOSAMAX [Suspect]
     Active Substance: ALENDRONATE SODIUM
     Dosage: 70 MG, UNK
     Route: 048
     Dates: end: 2007

REACTIONS (26)
  - Haematuria [Unknown]
  - Adrenal cyst [Unknown]
  - Ankle fracture [Unknown]
  - Atypical femur fracture [Unknown]
  - Atypical femur fracture [Unknown]
  - Hepatic neoplasm [Unknown]
  - Cystocele [Unknown]
  - Arrhythmia [Unknown]
  - Cough [Unknown]
  - Cellulitis [Unknown]
  - Hepatic haematoma [Unknown]
  - Cholecystectomy [Unknown]
  - Low turnover osteopathy [Unknown]
  - Blood cholesterol increased [Not Recovered/Not Resolved]
  - Nephrolithiasis [Unknown]
  - Depression [Unknown]
  - Erythema [Unknown]
  - Calculus urinary [Unknown]
  - Tonsillectomy [Unknown]
  - Incision site inflammation [Unknown]
  - Hepatic neoplasm [Unknown]
  - Appendicectomy [Unknown]
  - Arthropathy [Unknown]
  - Large intestine polyp [Unknown]
  - Osteoporosis [Unknown]
  - Bronchiectasis [Unknown]

NARRATIVE: CASE EVENT DATE: 1998
